FAERS Safety Report 26162793 (Version 2)
Quarter: 2025Q4

REPORT INFORMATION
  Report Type: Report from Study
  Country: RU (occurrence: RU)
  Receive Date: 20251216
  Receipt Date: 20251222
  Transmission Date: 20260118
  Serious: Yes (Death, Life-Threatening, Disabling)
  Sender: NOVARTIS
  Company Number: RU-002147023-NVSC2022RU261303

PATIENT
  Age: 50 Year
  Sex: Male
  Weight: 68 kg

DRUGS (3)
  1. TAFINLAR [Suspect]
     Active Substance: DABRAFENIB MESYLATE
     Indication: Metastatic malignant melanoma
     Dosage: 300 MG, QD
     Route: 048
     Dates: end: 20220517
  2. TAFINLAR [Suspect]
     Active Substance: DABRAFENIB MESYLATE
     Dosage: 300 MG, QD (PER DAY)
     Route: 048
     Dates: start: 20220719, end: 20220719
  3. MEKINIST [Suspect]
     Active Substance: TRAMETINIB DIMETHYL SULFOXIDE
     Indication: Metastatic malignant melanoma
     Dosage: 2 MG, QD (PER DAY)
     Route: 048
     Dates: start: 20220517, end: 20220517

REACTIONS (5)
  - Metastatic malignant melanoma [Fatal]
  - Malignant neoplasm progression [Fatal]
  - Lymphostasis [Recovered/Resolved]
  - Hyperthermia [Recovered/Resolved]
  - Erythema [Recovered/Resolved]

NARRATIVE: CASE EVENT DATE: 20220719
